FAERS Safety Report 11850759 (Version 1)
Quarter: 2015Q4

REPORT INFORMATION
  Report Type: Spontaneous
  Country: US (occurrence: US)
  Receive Date: 20151218
  Receipt Date: 20151218
  Transmission Date: 20160305
  Serious: No
  Sender: FDA-Public Use
  Company Number: US-JNJFOC-20151125276

PATIENT
  Age: 70 Year
  Sex: Male
  Weight: 71.22 kg

DRUGS (5)
  1. MENS ROGAINE EXTRA STRENGTH [Suspect]
     Active Substance: MINOXIDIL
     Indication: ALOPECIA
     Route: 061
     Dates: end: 20151125
  2. ASPIRIN. [Concomitant]
     Active Substance: ASPIRIN
     Indication: PROPHYLAXIS
     Dosage: USING SINCE YEARS
     Route: 065
  3. VITAMIN D TABLET [Concomitant]
     Indication: VITAMIN SUPPLEMENTATION
     Route: 065
  4. NTG T/GEL THERAPEUTIC SHAMPOO ORIGINAL [Concomitant]
     Indication: DANDRUFF
     Dosage: USING SINCE YEARS
     Route: 061
     Dates: end: 20151125
  5. MENS ROGAINE EXTRA STRENGTH [Suspect]
     Active Substance: MINOXIDIL
     Route: 061

REACTIONS (3)
  - Inappropriate schedule of drug administration [Not Recovered/Not Resolved]
  - Pruritus [Not Recovered/Not Resolved]
  - Skin exfoliation [Not Recovered/Not Resolved]
